FAERS Safety Report 4826003-0 (Version None)
Quarter: 2005Q4

REPORT INFORMATION
  Report Type: 
  Country: None (occurrence: None)
  Receive Date: 20051111
  Receipt Date: 20050713
  Transmission Date: 20060501
  Serious: Yes (Death, Hospitalization, Other)
  Sender: FDA-Public Use
  Company Number: US-MERCK-0507USA02059

PATIENT
  Age: 75 Year
  Sex: Male
  Weight: 80 kg

DRUGS (28)
  1. VIOXX [Suspect]
     Indication: OSTEOARTHRITIS
     Route: 048
     Dates: start: 20000302, end: 20030704
  2. [THERAPY UNSPECIFIED] [Concomitant]
     Indication: HYPERTENSION
     Route: 065
     Dates: start: 20030630, end: 20030704
  3. [THERAPY UNSPECIFIED] [Concomitant]
     Indication: CARDIAC DISORDER
     Route: 065
     Dates: start: 20030630, end: 20030704
  4. TOPROL-XL [Concomitant]
     Indication: HYPERTENSION
     Route: 065
     Dates: start: 19981104, end: 20030704
  5. TOPROL-XL [Concomitant]
     Indication: CHEST PAIN
     Route: 065
     Dates: start: 19981104, end: 20030704
  6. FUROSEMIDE [Concomitant]
     Indication: HYPERTENSION
     Route: 065
     Dates: start: 20030630, end: 20030704
  7. FUROSEMIDE [Concomitant]
     Indication: OEDEMA
     Route: 065
     Dates: start: 20030630, end: 20030704
  8. ASPIRIN [Concomitant]
     Indication: PROPHYLAXIS
     Route: 065
     Dates: start: 20000524, end: 20030704
  9. ULTRACET [Concomitant]
     Indication: OSTEOARTHRITIS
     Route: 065
     Dates: start: 20030514, end: 20030701
  10. ULTRACET [Concomitant]
     Indication: ANALGESIC EFFECT
     Route: 065
     Dates: start: 20030514, end: 20030701
  11. ALBUTEROL [Concomitant]
     Indication: DYSPNOEA
     Route: 065
     Dates: start: 20000614
  12. AMITRIPTYLINE HYDROCHLORIDE [Concomitant]
     Indication: DEPRESSION
     Route: 065
     Dates: start: 19990204
  13. BAYCOL [Concomitant]
     Indication: BLOOD CHOLESTEROL INCREASED
     Route: 065
     Dates: start: 19981104
  14. ECHINACEA [Concomitant]
     Route: 065
     Dates: start: 20000724
  15. FOLIC ACID [Concomitant]
     Route: 065
     Dates: start: 20000724
  16. GLUCOSAMINE [Concomitant]
     Route: 065
     Dates: start: 20000524
  17. K-DUR 10 [Concomitant]
     Route: 065
     Dates: start: 20000803
  18. LANOXIN [Concomitant]
     Route: 065
     Dates: start: 20000614
  19. LASIX [Concomitant]
     Indication: HYPERTENSION
     Route: 065
     Dates: start: 20000628
  20. LEXAPRO [Concomitant]
     Indication: DEPRESSION
     Route: 065
     Dates: start: 20030417
  21. LIPITOR [Concomitant]
     Indication: BLOOD CHOLESTEROL INCREASED
     Route: 065
     Dates: start: 20010813
  22. NORVASC [Concomitant]
     Indication: HYPERTENSION
     Route: 065
     Dates: start: 19990811
  23. NORVASC [Concomitant]
     Indication: ANGINA PECTORIS
     Route: 065
     Dates: start: 19990811
  24. PAXIL [Concomitant]
     Indication: DEPRESSION
     Route: 065
     Dates: start: 20020826
  25. POTASSIUM (UNSPECIFIED) [Concomitant]
     Route: 065
     Dates: start: 20000628
  26. PREVACID [Concomitant]
     Indication: HYPERCHLORHYDRIA
     Route: 065
     Dates: start: 20010326
  27. VITAMIN E [Concomitant]
     Route: 065
     Dates: start: 20000524
  28. ZOCOR [Concomitant]
     Indication: BLOOD CHOLESTEROL INCREASED
     Route: 065
     Dates: start: 20030404

REACTIONS (28)
  - ACQUIRED DIAPHRAGMATIC EVENTRATION [None]
  - ANGINA UNSTABLE [None]
  - ANXIETY [None]
  - ARTHRALGIA [None]
  - ASTHMA [None]
  - ATELECTASIS [None]
  - ATRIOVENTRICULAR BLOCK FIRST DEGREE [None]
  - CHRONIC OBSTRUCTIVE PULMONARY DISEASE [None]
  - CONSTIPATION [None]
  - CORONARY ARTERY STENOSIS [None]
  - DIAPHRAGMATIC PARALYSIS [None]
  - DIZZINESS [None]
  - DRESSLER'S SYNDROME [None]
  - DRUG HYPERSENSITIVITY [None]
  - DYSPNOEA [None]
  - ENCEPHALOPATHY [None]
  - LUNG DISORDER [None]
  - LUNG INFILTRATION [None]
  - MYOCARDIAL INFARCTION [None]
  - PAIN [None]
  - PERICARDITIS [None]
  - PLATELET COUNT INCREASED [None]
  - PLEURAL EFFUSION [None]
  - POSTPERICARDIOTOMY SYNDROME [None]
  - RESPIRATORY DISORDER [None]
  - THORACOTOMY [None]
  - TRACHEOSTOMY [None]
  - UPPER RESPIRATORY TRACT INFECTION [None]
